FAERS Safety Report 10098285 (Version 1)
Quarter: 2014Q2

REPORT INFORMATION
  Report Type: Spontaneous
  Country: US (occurrence: None)
  Receive Date: 20140422
  Receipt Date: 20140422
  Transmission Date: 20141212
  Serious: Yes (Life-Threatening)
  Sender: FDA-Public Use
  Company Number: None

PATIENT
  Age: 58 Year
  Sex: Male
  Weight: 98.6 kg

DRUGS (1)
  1. IBUPROFEN [Suspect]
     Indication: PAIN
     Route: 048
     Dates: start: 20140315, end: 20140315

REACTIONS (6)
  - Palpitations [None]
  - Chest discomfort [None]
  - Cough [None]
  - Bronchospasm [None]
  - Tongue disorder [None]
  - No therapeutic response [None]
